FAERS Safety Report 19379917 (Version 1)
Quarter: 2021Q2

REPORT INFORMATION
  Report Type: Spontaneous
  Country: US (occurrence: US)
  Receive Date: 20210607
  Receipt Date: 20210607
  Transmission Date: 20210717
  Serious: Yes (Other)
  Sender: FDA-Public Use
  Company Number: US-LUPIN PHARMACEUTICALS INC.-2021-08669

PATIENT
  Age: 76 Year
  Sex: Female

DRUGS (4)
  1. METHYLPREDNISOLONE. [Suspect]
     Active Substance: METHYLPREDNISOLONE
     Indication: RETINAL OCCLUSIVE VASCULITIS
     Dosage: UNK (HIGH?DOSE PULSE THERAPY)
     Route: 048
  2. LUPIN^S RANIBIZUMAB [Suspect]
     Active Substance: RANIBIZUMAB
     Indication: NEOVASCULAR AGE-RELATED MACULAR DEGENERATION
     Dosage: UNK
  3. BROLUCIZUMAB. [Suspect]
     Active Substance: BROLUCIZUMAB
     Indication: AGE-RELATED MACULAR DEGENERATION
     Dosage: UNK (THREE INJECTIONS)
  4. DIFLUPREDNATE [Suspect]
     Active Substance: DIFLUPREDNATE
     Indication: RETINAL OCCLUSIVE VASCULITIS
     Dosage: UNK (EVERY 2 HOURS)
     Route: 061

REACTIONS (2)
  - Eye inflammation [Recovering/Resolving]
  - Treatment failure [Unknown]
